FAERS Safety Report 18061171 (Version 1)
Quarter: 2020Q3

REPORT INFORMATION
  Report Type: Spontaneous
  Country: CN (occurrence: CN)
  Receive Date: 20200723
  Receipt Date: 20200723
  Transmission Date: 20201103
  Serious: Yes (Other)
  Sender: FDA-Public Use
  Company Number: CN-BAYER-2020-141414

PATIENT
  Age: 73 Year
  Sex: Male
  Weight: 56 kg

DRUGS (3)
  1. AVELOX [Suspect]
     Active Substance: MOXIFLOXACIN HYDROCHLORIDE
     Indication: SYMPTOMATIC TREATMENT
     Dosage: 0.4 G, QD
     Route: 041
     Dates: start: 20200519, end: 20200522
  2. CEFTIZOXIME SODIUM [Concomitant]
     Active Substance: CEFTIZOXIME SODIUM
  3. CEFTIZOXIME [Concomitant]
     Active Substance: CEFTIZOXIME

REACTIONS (2)
  - Delirium [Recovered/Resolved]
  - Confusional state [None]

NARRATIVE: CASE EVENT DATE: 20200521
